FAERS Safety Report 19412391 (Version 1)
Quarter: 2021Q2

REPORT INFORMATION
  Report Type: Spontaneous
  Country: US (occurrence: US)
  Receive Date: 20210614
  Receipt Date: 20210614
  Transmission Date: 20210717
  Serious: No
  Sender: FDA-Public Use
  Company Number: US-PFIZER INC-2021297838

PATIENT
  Age: 20 Year
  Sex: Female

DRUGS (1)
  1. GEODON [Suspect]
     Active Substance: ZIPRASIDONE HYDROCHLORIDE\ZIPRASIDONE MESYLATE
     Indication: BIPOLAR DISORDER
     Dosage: 20 MG

REACTIONS (5)
  - Anxiety [Unknown]
  - Withdrawal syndrome [Unknown]
  - Panic reaction [Unknown]
  - Tremor [Unknown]
  - Nausea [Recovered/Resolved]
